FAERS Safety Report 7315444-8 (Version None)
Quarter: 2011Q1

REPORT INFORMATION
  Report Type: 
  Country: None (occurrence: None)
  Receive Date: 20110225
  Receipt Date: 20110210
  Transmission Date: 20110831
  Serious: Yes (Hospitalization)
  Sender: FDA-Public Use
  Company Number: FR-CELGENEUS-056-C5013-10102328

PATIENT
  Sex: Male
  Weight: 68 kg

DRUGS (6)
  1. CC-5013 [Suspect]
     Indication: MULTIPLE MYELOMA
     Route: 048
     Dates: start: 20100719, end: 20100816
  2. ZELITREX [Concomitant]
     Route: 065
  3. DEXAMETHASONE [Suspect]
     Indication: MULTIPLE MYELOMA
     Route: 065
     Dates: start: 20100719, end: 20100816
  4. TOLEXINE [Concomitant]
     Indication: PROPHYLAXIS
     Route: 065
  5. ASPEGIC 325 [Concomitant]
     Route: 065
  6. FORLAX [Concomitant]
     Route: 065

REACTIONS (2)
  - CHOROIDAL DETACHMENT [None]
  - CONJUNCTIVAL OEDEMA [None]
